FAERS Safety Report 9788882 (Version 1)
Quarter: 2013Q4

REPORT INFORMATION
  Report Type: Spontaneous
  Country: IT (occurrence: IT)
  Receive Date: 20131230
  Receipt Date: 20131230
  Transmission Date: 20140711
  Serious: Yes (Other)
  Sender: FDA-Public Use
  Company Number: IT-GLAXOSMITHKLINE-B0955113A

PATIENT
  Age: 67 Year
  Sex: Female

DRUGS (2)
  1. TYVERB [Suspect]
     Indication: BREAST CANCER
     Dosage: 1250MG PER DAY
     Route: 048
     Dates: start: 20131031, end: 20131204
  2. XELODA [Concomitant]
     Dosage: 1000MG PER DAY
     Route: 048
     Dates: start: 20131018, end: 20131204

REACTIONS (4)
  - Blepharitis [Not Recovered/Not Resolved]
  - Stomatitis [Not Recovered/Not Resolved]
  - Lip ulceration [Not Recovered/Not Resolved]
  - Skin exfoliation [Not Recovered/Not Resolved]
